FAERS Safety Report 7522193-X (Version None)
Quarter: 2011Q2

REPORT INFORMATION
  Report Type: 
  Country: None (occurrence: None)
  Receive Date: 20110603
  Receipt Date: 20110531
  Transmission Date: 20111010
  Serious: Yes (Hospitalization)
  Sender: FDA-Public Use
  Company Number: US-ROXANE LABORATORIES, INC.-2011-RO-00750RO

PATIENT
  Age: 66 Year
  Sex: Male
  Weight: 81 kg

DRUGS (11)
  1. PANTOPRAZOLE [Concomitant]
     Indication: GASTROOESOPHAGEAL REFLUX DISEASE
     Dates: start: 20070101
  2. OXYCODONE HCL AND ACETAMINOPHEN [Concomitant]
     Indication: PAIN
     Dates: start: 20110301
  3. VALSARTAN [Concomitant]
     Indication: HYPERTENSION
     Dates: start: 20100401
  4. SENNA FRUIT [Concomitant]
     Indication: CONSTIPATION
     Dates: start: 20100201
  5. METHYLPHENIDATE HCL [Concomitant]
     Indication: FATIGUE
     Dates: start: 20110301
  6. CRIZOTINIB [Suspect]
     Indication: NON-SMALL CELL LUNG CANCER
     Dosage: 500 MG
     Route: 048
     Dates: start: 20110330, end: 20110415
  7. FONDAPARINUX SODIUM [Concomitant]
     Indication: THROMBOPHLEBITIS
     Dates: start: 20020201
  8. FUROSEMIDE [Concomitant]
     Indication: HYPERTENSION
     Dates: start: 20100424
  9. DEXAMETHASONE [Suspect]
     Indication: FATIGUE
     Dosage: 8 MG
     Route: 048
     Dates: start: 20110312
  10. ACETAMINOPHEN [Concomitant]
     Indication: COGNITIVE DISORDER
     Dates: start: 20100201
  11. DOCUSATE SODIUM [Concomitant]
     Indication: CONSTIPATION
     Dates: start: 20100201

REACTIONS (1)
  - LARGE INTESTINE PERFORATION [None]
